FAERS Safety Report 7978584-6 (Version None)
Quarter: 2011Q4

REPORT INFORMATION
  Report Type: 
  Country: None (occurrence: None)
  Receive Date: 20111214
  Receipt Date: 20111205
  Transmission Date: 20120403
  Serious: No
  Sender: FDA-Public Use
  Company Number: US-JNJFOC-20111202219

PATIENT
  Sex: Female
  Weight: 104.33 kg

DRUGS (8)
  1. ABILIFY [Concomitant]
     Indication: ANXIETY
     Route: 048
     Dates: start: 20110801
  2. MAGNESIUM SULFATE [Concomitant]
     Indication: NEUROMYOPATHY
     Route: 048
     Dates: start: 20111001
  3. DURAGESIC-100 [Suspect]
     Indication: SURGERY
     Dosage: 12.5 UG/HR X 2 PATCHES = 25 UG/HR
     Route: 062
     Dates: start: 20111101, end: 20111101
  4. LEXAPRO [Concomitant]
     Indication: DEPRESSION
     Route: 048
     Dates: start: 20110801
  5. VALIUM [Concomitant]
     Indication: ANXIETY
     Route: 048
     Dates: start: 20111001
  6. VITAMIN D [Concomitant]
     Indication: NUTRITIONAL SUPPORT
     Route: 048
     Dates: start: 20110101
  7. DURAGESIC-100 [Suspect]
     Route: 062
     Dates: start: 20111101
  8. MULTI-VITAMINS [Concomitant]
     Indication: NUTRITIONAL SUPPORT
     Route: 048
     Dates: start: 20110101

REACTIONS (3)
  - PAIN IN EXTREMITY [None]
  - WRONG TECHNIQUE IN DRUG USAGE PROCESS [None]
  - DRUG INEFFECTIVE [None]
